FAERS Safety Report 7774063 (Version 4)
Quarter: 2013Q1

REPORT INFORMATION
  Report Type: Spontaneous
  Country: US (occurrence: US)
  Receive Date: 20110126
  Receipt Date: 20130130
  Transmission Date: 20140127
  Serious: No
  Sender: FDA-Public Use
  Company Number: US-BIOGENIDEC-2011BI002382

PATIENT
  Age: 47 Year
  Sex: Female

DRUGS (1)
  1. TYSABRI [Suspect]
     Indication: MULTIPLE SCLEROSIS
     Route: 042
     Dates: start: 20101209

REACTIONS (17)
  - Nephrolithiasis [Recovered/Resolved]
  - Decreased appetite [Not Recovered/Not Resolved]
  - Tinnitus [Recovered/Resolved]
  - Gastrointestinal disorder [Recovered/Resolved]
  - Cognitive disorder [Not Recovered/Not Resolved]
  - Injection site pain [Recovered/Resolved]
  - Muscle spasticity [Recovered/Resolved]
  - Pain [Unknown]
  - Tremor [Unknown]
  - Weight decreased [Not Recovered/Not Resolved]
  - Stress [Recovered/Resolved]
  - Paraesthesia [Recovered/Resolved]
  - Nausea [Recovered/Resolved]
  - Headache [Recovered/Resolved]
  - Dizziness [Recovered/Resolved]
  - Upper respiratory tract infection [Recovered/Resolved]
  - Urinary tract infection [Recovered/Resolved]
